FAERS Safety Report 17703310 (Version 6)
Quarter: 2020Q3

REPORT INFORMATION
  Report Type: Report from Study
  Country: None (occurrence: CH)
  Receive Date: 20200423
  Receipt Date: 20200721
  Transmission Date: 20201102
  Serious: Yes (Hospitalization)
  Sender: FDA-Public Use
  Company Number: CH-ABBVIE-20K-151-3373880-00

PATIENT
  Age: 64 Year
  Sex: Male

DRUGS (31)
  1. DUODOPA [Suspect]
     Active Substance: CARBIDOPA\LEVODOPA
     Indication: PARKINSON^S DISEASE
     Route: 050
     Dates: start: 20150710, end: 20190719
  2. DUODOPA [Suspect]
     Active Substance: CARBIDOPA\LEVODOPA
     Dosage: MD: 10 ML, CR DAY: 3.6 ML/H, CRN: 0 ML/H, ED: 2.5 ML 1 CASSETTE PER DAY,16 H THERAPY
     Route: 050
     Dates: start: 20200303
  3. MAGNESIOCARD [Concomitant]
     Active Substance: MAGNESIUM ASPARTATE HYDROCHLORIDE
     Indication: PRODUCT USED FOR UNKNOWN INDICATION
     Dosage: AT 5 PM
  4. SEQUASE [Concomitant]
     Active Substance: QUETIAPINE FUMARATE
     Indication: PRODUCT USED FOR UNKNOWN INDICATION
     Dosage: AT 8 PM
  5. DAFALGAN [Concomitant]
     Active Substance: ACETAMINOPHEN
     Indication: PRODUCT USED FOR UNKNOWN INDICATION
     Dosage: AS RESERVE MEDICATION, MAX. 4 TABLETS PER DAY
  6. DUODOPA [Suspect]
     Active Substance: CARBIDOPA\LEVODOPA
     Dosage: MD: 10 ML, CRD: 2.7 ML/H, ERN: 0 ML/H, ED: 2.5 ML LOCKING LEVEL ED: 2 H 16 H THERAPY
     Route: 050
     Dates: start: 202006, end: 202006
  7. MACROGOL MEPHA [Concomitant]
     Active Substance: POLYETHYLENE GLYCOL 3350\POTASSIUM CHLORIDE\SODIUM BICARBONATE\SODIUM CHLORIDE
     Indication: PRODUCT USED FOR UNKNOWN INDICATION
     Dosage: AT 8 AM
  8. ACIDUM FOLICUM STREULI [Concomitant]
     Active Substance: FOLIC ACID
     Indication: PRODUCT USED FOR UNKNOWN INDICATION
     Dosage: AT 8 AM
  9. FLORINEF ACETATE [Concomitant]
     Active Substance: FLUDROCORTISONE ACETATE
     Indication: PRODUCT USED FOR UNKNOWN INDICATION
     Dosage: AT 8 AM
  10. DUODOPA [Suspect]
     Active Substance: CARBIDOPA\LEVODOPA
     Dosage: MD: 10 ML, CR DAY: 3.6 ML/H, CRN: 0 ML/H, ED: 2.5 ML 1 CASSETTE PER DAY,16 H THERAPY
     Route: 050
     Dates: start: 2020, end: 202004
  11. DUODOPA [Suspect]
     Active Substance: CARBIDOPA\LEVODOPA
     Dosage: MD: 10 ML, CR DAY: 2.7 ML/H, CDRN:: 0 ML/H, ED: 2.5 ML LOCKING LEVEL ED: 2 H 16 H THERAPY
     Route: 050
     Dates: start: 2020, end: 2020
  12. DUODOPA [Suspect]
     Active Substance: CARBIDOPA\LEVODOPA
     Dosage: CRD: 2.7 ML/H, CRN: 0 ML/H, ED: 2.5 ML LOCKING LEVEL ED: 2 H 16 H THERAPY
     Route: 050
     Dates: start: 20200617, end: 20200617
  13. CALCIMAGON D3 [Concomitant]
     Active Substance: CALCIUM\CHOLECALCIFEROL
     Indication: PRODUCT USED FOR UNKNOWN INDICATION
     Dosage: AT 8 AM
  14. CLOPIN ECO [Concomitant]
     Active Substance: CLOZAPINE
     Indication: PRODUCT USED FOR UNKNOWN INDICATION
     Dosage: AT 8 PM
  15. NOVALGIN [Concomitant]
     Indication: PRODUCT USED FOR UNKNOWN INDICATION
     Dosage: 0.5 G/ML (20 DROPS = 500 MG)?AT 8 AM, AT 11 AM, AT 5 PM, AT 8 PM
  16. VITAMIN D3 STREULI [Concomitant]
     Active Substance: CHOLECALCIFEROL
     Indication: PRODUCT USED FOR UNKNOWN INDICATION
     Dosage: 4000 IU/ML, AT 11 AM?WEDNESDAYS
  17. TEMESTA [Concomitant]
     Indication: PRODUCT USED FOR UNKNOWN INDICATION
     Dosage: AS RESERVE MEDICATION, MAX. 5 TABLETS PER DAY
  18. SANDOZ CR [Concomitant]
     Indication: PRODUCT USED FOR UNKNOWN INDICATION
     Dosage: AT 8 PM?25 MG CARBIDOPA, 100 MG LEVODOPA
  19. GUTRON [Concomitant]
     Active Substance: MIDODRINE HYDROCHLORIDE
     Indication: PRODUCT USED FOR UNKNOWN INDICATION
     Dosage: 10 MG/ML (30 DROPS = 10 MG)?AT 8 AM, AT 5 PM
  20. CLEXANE [Concomitant]
     Active Substance: ENOXAPARIN SODIUM
     Indication: PRODUCT USED FOR UNKNOWN INDICATION
     Dosage: AT THE EVENING,?40 MG/0.4 ML
  21. DUODOPA [Suspect]
     Active Substance: CARBIDOPA\LEVODOPA
     Dosage: MD: 12 ML, CR DAY: 4.2 ML/H, CR NIGHT: 0 ML/H, ED: 2.5 ML,16 H THERAPY
     Route: 050
     Dates: start: 20190719, end: 20200303
  22. DUODOPA [Suspect]
     Active Substance: CARBIDOPA\LEVODOPA
     Dosage: MD: 10 ML, CD: 2.7 ML/H, CD  NIGHT: 0 ML/H, ED: 2.5 ML?LOCKING LEVEL EXTRA DOSE: 2 H
     Route: 050
     Dates: start: 20200717
  23. DOMPERIDON MEPHA [Concomitant]
     Active Substance: DOMPERIDONE
     Indication: PRODUCT USED FOR UNKNOWN INDICATION
     Dosage: AT 8 AM, AT 11 AM, AT 5 PM
     Route: 060
  24. PROSTAPLANT [Concomitant]
     Indication: PRODUCT USED FOR UNKNOWN INDICATION
     Dosage: AT 8 AM
  25. DUODOPA [Suspect]
     Active Substance: CARBIDOPA\LEVODOPA
     Dosage: MD: 10 ML, CD: 3.6 ML/H, CDRN: 0 ML/H, ED: 2.5 ML 1 CASSETTE/DAY, ED: 2 H16 H THERAPY
     Route: 050
     Dates: start: 20200421, end: 2020
  26. DUODOPA [Suspect]
     Active Substance: CARBIDOPA\LEVODOPA
     Dosage: MD: 10 ML, CONTINUOUS RATE DAY: 2.7 ML/H,  ED: 2.5 ML?LOCKING LEVEL ED: 2 H\16H THERAPY
     Route: 050
     Dates: start: 20200618, end: 2020
  27. DUODOPA [Suspect]
     Active Substance: CARBIDOPA\LEVODOPA
     Dosage: CD DAY: 2.7 ML/H, CR  NIGHT: 0 ML/H, EXTRA DOSE: 2.5 ML?LOCKING LEVEL ED: 2 H16H THERAPY
     Route: 050
     Dates: start: 2020, end: 20200716
  28. SEQUASE [Concomitant]
     Active Substance: QUETIAPINE FUMARATE
     Indication: PRODUCT USED FOR UNKNOWN INDICATION
     Dosage: AT 8 AM
  29. RINGER BICHSEL [Concomitant]
     Indication: PRODUCT USED FOR UNKNOWN INDICATION
     Dosage: AS RESERVE MEDICATION, MAX. 500 ML PER DAY
  30. PANTOZOL [Concomitant]
     Active Substance: PANTOPRAZOLE SODIUM
     Indication: PRODUCT USED FOR UNKNOWN INDICATION
     Dosage: AT 8 AM
  31. SEQUASE [Concomitant]
     Active Substance: QUETIAPINE FUMARATE
     Indication: PRODUCT USED FOR UNKNOWN INDICATION
     Dosage: AS RESERVE MEDICATION, MAX. 2 TABLETS PER DAY

REACTIONS (26)
  - Patient uncooperative [Unknown]
  - Delirium [Unknown]
  - Anxiety [Unknown]
  - Dysarthria [Recovering/Resolving]
  - Incorrect dose administered [Recovered/Resolved]
  - Dementia [Not Recovered/Not Resolved]
  - Confusional state [Not Recovered/Not Resolved]
  - Incorrect dose administered [Unknown]
  - Impaired self-care [Unknown]
  - Gait disturbance [Recovering/Resolving]
  - Aggression [Unknown]
  - Dyskinesia [Recovered/Resolved]
  - Memory impairment [Unknown]
  - Speech disorder [Unknown]
  - Akinesia [Not Recovered/Not Resolved]
  - Mental impairment [Recovered/Resolved]
  - Device issue [Recovered/Resolved]
  - Urinary tract infection [Unknown]
  - Hypotonia [Not Recovered/Not Resolved]
  - Mobility decreased [Unknown]
  - Hypoacusis [Recovering/Resolving]
  - Fall [Unknown]
  - Device dislocation [Recovered/Resolved]
  - Stoma site discharge [Not Recovered/Not Resolved]
  - Hyperkinesia [Not Recovered/Not Resolved]
  - Off label use [Not Recovered/Not Resolved]

NARRATIVE: CASE EVENT DATE: 20200420
